FAERS Safety Report 5311560-0 (Version None)
Quarter: 2007Q2

REPORT INFORMATION
  Report Type: 
  Country: None (occurrence: None)
  Receive Date: 20070430
  Receipt Date: 20070425
  Transmission Date: 20071010
  Serious: Yes (Hospitalization)
  Sender: FDA-Public Use
  Company Number: EE-GLAXOSMITHKLINE-B0468551A

PATIENT
  Age: 31 Year
  Sex: Male

DRUGS (3)
  1. COMBIVIR [Suspect]
     Indication: HIV INFECTION
     Route: 048
     Dates: start: 20070303, end: 20070313
  2. STOCRIN [Concomitant]
     Indication: HIV INFECTION
  3. EPIVIR [Concomitant]
     Indication: HIV INFECTION

REACTIONS (2)
  - THROMBOCYTOPENIA [None]
  - THROMBOCYTOPENIC PURPURA [None]
